FAERS Safety Report 15571954 (Version 1)
Quarter: 2018Q4

REPORT INFORMATION
  Report Type: Spontaneous
  Country: KR (occurrence: KR)
  Receive Date: 20181031
  Receipt Date: 20181031
  Transmission Date: 20190205
  Serious: Yes (Other)
  Sender: FDA-Public Use
  Company Number: KR-MACLEODS PHARMACEUTICALS US LTD-MAC2018018247

PATIENT

DRUGS (1)
  1. TENOFOVIR 300MG TABLET [Suspect]
     Active Substance: TENOFOVIR
     Indication: HEPATIC ENZYME INCREASED
     Dosage: 300 MILLIGRAM, QD
     Route: 048

REACTIONS (4)
  - Aspartate aminotransferase increased [Recovered/Resolved]
  - Alanine aminotransferase increased [Recovered/Resolved]
  - Hepatitis B DNA increased [Recovering/Resolving]
  - Drug resistance [Unknown]
